FAERS Safety Report 15639594 (Version 2)
Quarter: 2018Q4

REPORT INFORMATION
  Report Type: Spontaneous
  Country: US (occurrence: US)
  Receive Date: 20181120
  Receipt Date: 20181128
  Transmission Date: 20190205
  Serious: No
  Sender: FDA-Public Use
  Company Number: US-PFIZER INC-2018475201

PATIENT
  Age: 68 Year
  Sex: Female
  Weight: 72.56 kg

DRUGS (1)
  1. IBRANCE [Suspect]
     Active Substance: PALBOCICLIB
     Indication: BREAST CANCER
     Dosage: 125 MG, CYCLIC, (ONCE PER DAY, 21 DAYS ON AND 7 DAYS OFF)
     Route: 048

REACTIONS (2)
  - White blood cell count abnormal [Unknown]
  - Blood count abnormal [Unknown]
